FAERS Safety Report 9688018 (Version 1)
Quarter: 2013Q4

REPORT INFORMATION
  Report Type: Spontaneous
  Country: US (occurrence: US)
  Receive Date: 20131114
  Receipt Date: 20131114
  Transmission Date: 20140711
  Serious: Yes (Death, Other)
  Sender: FDA-Public Use
  Company Number: US-ASTELLAS-2013US011833

PATIENT
  Sex: Female

DRUGS (1)
  1. PROGRAF [Suspect]
     Indication: RENAL TRANSPLANT
     Dosage: 1 MG, BID
     Route: 048
     Dates: start: 20081120

REACTIONS (6)
  - Cardio-respiratory arrest [Fatal]
  - Coronary artery disease [Unknown]
  - Sleep apnoea syndrome [Unknown]
  - Cerebral infarction [Unknown]
  - Hypertension [Unknown]
  - Renal failure [Unknown]
